FAERS Safety Report 11316570 (Version 1)
Quarter: 2015Q3

REPORT INFORMATION
  Report Type: Spontaneous
  Country: US (occurrence: US)
  Receive Date: 20150728
  Receipt Date: 20150728
  Transmission Date: 20151125
  Serious: Yes (Hospitalization, Other)
  Sender: FDA-Public Use
  Company Number: US-PFIZER INC-2015243526

PATIENT
  Age: 80 Year
  Sex: Male
  Weight: 110 kg

DRUGS (3)
  1. TIKOSYN [Suspect]
     Active Substance: DOFETILIDE
     Indication: VENTRICULAR TACHYARRHYTHMIA
  2. TIKOSYN [Suspect]
     Active Substance: DOFETILIDE
     Indication: CARDIOMYOPATHY
     Dosage: 125 ?G, 2X/DAY
  3. TIKOSYN [Suspect]
     Active Substance: DOFETILIDE
     Indication: ARRHYTHMIA

REACTIONS (3)
  - Contraindicated drug administered [Not Recovered/Not Resolved]
  - Electrocardiogram QT prolonged [Unknown]
  - Pneumonia [Recovered/Resolved]

NARRATIVE: CASE EVENT DATE: 201507
